FAERS Safety Report 12884964 (Version 1)
Quarter: 2016Q4

REPORT INFORMATION
  Report Type: Report from Study
  Country: IN (occurrence: IN)
  Receive Date: 20161026
  Receipt Date: 20161026
  Transmission Date: 20170207
  Serious: Yes (Other)
  Sender: FDA-Public Use
  Company Number: IN-ROCHE-1845051

PATIENT
  Age: 40 Year
  Sex: Male

DRUGS (1)
  1. EXXURA [Suspect]
     Active Substance: PEGINTERFERON ALFA-2A
     Indication: HEPATITIS C
     Route: 058
     Dates: end: 20141204

REACTIONS (5)
  - Condition aggravated [Unknown]
  - Body temperature increased [Unknown]
  - Arthralgia [Unknown]
  - Haemoglobin decreased [Unknown]
  - General physical health deterioration [Unknown]
